FAERS Safety Report 10434493 (Version 1)
Quarter: 2014Q3

REPORT INFORMATION
  Report Type: Spontaneous
  Country: US (occurrence: US)
  Receive Date: 20140905
  Receipt Date: 20140905
  Transmission Date: 20150326
  Serious: Yes (Hospitalization, Other)
  Sender: FDA-Public Use
  Company Number: US-ASTRAZENECA-2014SE65806

PATIENT
  Age: 78 Year
  Sex: Female
  Weight: 68 kg

DRUGS (4)
  1. LIPITOR [Concomitant]
     Active Substance: ATORVASTATIN CALCIUM
     Dosage: UNKNOWN DAILY
  2. OTHER(S)-UNSPECIFIED [Concomitant]
     Dosage: UNKNOWN UNK
  3. SYMBICORT [Suspect]
     Active Substance: BUDESONIDE\FORMOTEROL FUMARATE DIHYDRATE
     Indication: CHRONIC OBSTRUCTIVE PULMONARY DISEASE
     Dosage: 160/4.5 MCG, 2 PUFFS BID
     Route: 055
     Dates: start: 2009
  4. PLAVIX [Concomitant]
     Active Substance: CLOPIDOGREL BISULFATE
     Indication: BLOOD CHOLESTEROL ABNORMAL
     Dosage: UNKNOWN DAILY

REACTIONS (3)
  - Off label use [Not Recovered/Not Resolved]
  - Aphasia [Unknown]
  - Cerebrovascular accident [Recovering/Resolving]

NARRATIVE: CASE EVENT DATE: 2009
